FAERS Safety Report 7770466-8 (Version None)
Quarter: 2011Q3

REPORT INFORMATION
  Report Type: 
  Country: None (occurrence: None)
  Receive Date: 20110922
  Receipt Date: 20110615
  Transmission Date: 20111222
  Serious: No
  Sender: FDA-Public Use
  Company Number: US-ASTRAZENECA-2009UW03137

PATIENT
  Age: 48 Year
  Sex: Female
  Weight: 64.4 kg

DRUGS (24)
  1. SEROQUEL [Suspect]
     Indication: SLEEP DISORDER
     Route: 048
     Dates: start: 20050101, end: 20060101
  2. SEROQUEL [Suspect]
     Route: 048
     Dates: start: 20051010
  3. ABILIFY [Concomitant]
  4. TYLENOL-500 [Concomitant]
     Indication: PYREXIA
     Dosage: 650 MG  PRN
     Dates: start: 20051010
  5. EFFEXOR [Concomitant]
     Dates: start: 20051010
  6. SERTRALINE HYDROCHLORIDE [Concomitant]
     Dates: start: 20051010
  7. LUVOX [Concomitant]
     Dates: start: 20061001
  8. ATIVAN [Concomitant]
     Dosage: 1 MG 3 TAB BID
     Dates: start: 20061001
  9. RISPERDAL [Concomitant]
  10. DIFLUCAN [Concomitant]
     Indication: VAGINAL INFECTION
     Dates: start: 20061026
  11. SEROQUEL [Suspect]
     Route: 048
     Dates: start: 20051010
  12. TYLENOL-500 [Concomitant]
     Indication: PAIN
     Dosage: 650 MG  PRN
     Dates: start: 20051010
  13. MACROBID [Concomitant]
     Indication: DYSURIA
     Route: 048
     Dates: start: 20061026
  14. CYMBALTA [Concomitant]
  15. CELEXA [Concomitant]
     Dates: start: 20051010
  16. XANAX [Concomitant]
     Dates: start: 20051010
  17. AMBIEN [Concomitant]
     Dates: start: 20051010
  18. AMBIEN [Concomitant]
     Dosage: 10 MG 2 TABS AT BED TIME
     Dates: start: 20061001
  19. RESTORIL [Concomitant]
     Dates: start: 20061001
  20. PROMETHAZINE HCL AND CODEINE [Concomitant]
     Indication: COUGH
     Dosage: 10 MG -6.25 MG /5 ML Q 4-6 H
     Route: 048
     Dates: start: 20061026
  21. SEROQUEL [Suspect]
     Indication: ANXIETY
     Route: 048
     Dates: start: 20050101, end: 20060101
  22. PROZAC [Concomitant]
     Dates: start: 19890101
  23. MYLANTA [Concomitant]
     Indication: DYSPEPSIA
     Dosage: 30 C PRN
     Route: 048
     Dates: start: 20051010
  24. TRAMADOL HCL [Concomitant]
     Dosage: 50 MG 1 TAB Q 4-6 H
     Dates: start: 20061001

REACTIONS (3)
  - DIABETES MELLITUS [None]
  - INSULIN RESISTANCE [None]
  - HYPERGLYCAEMIA [None]
